FAERS Safety Report 6582820-0 (Version None)
Quarter: 2010Q1

REPORT INFORMATION
  Report Type: 
  Country: None (occurrence: None)
  Receive Date: 20100216
  Receipt Date: 20100204
  Transmission Date: 20100710
  Serious: Yes (Hospitalization, Congenital Anomaly)
  Sender: FDA-Public Use
  Company Number: JP-PFIZER INC-2008150256

PATIENT
  Age: 35 Year
  Sex: Female

DRUGS (18)
  1. LIPITOR [Suspect]
     Indication: HYPERLIPIDAEMIA
     Dosage: 5 MG, 1X/DAY
     Route: 048
  2. PREDNISOLONE [Suspect]
     Indication: LUPUS NEPHRITIS
     Dosage: 10-20 MG, ALTERNATE DAY
     Route: 048
     Dates: end: 20070816
  3. PREDNISOLONE [Suspect]
     Dosage: 30 MG, 1X/DAY
     Route: 048
     Dates: start: 20070817, end: 20071206
  4. PREDNISOLONE [Suspect]
     Dosage: 25 MG, 1X/DAY
     Route: 048
     Dates: start: 20071207, end: 20080104
  5. PREDNISOLONE [Suspect]
     Dosage: 30 MG, 1X/DAY
     Route: 048
     Dates: start: 20080105, end: 20080509
  6. PREDNISOLONE [Suspect]
     Dosage: 25 MG, 1X/DAY
     Route: 048
     Dates: start: 20080510, end: 20080711
  7. PROGRAF [Suspect]
     Indication: LUPUS NEPHRITIS
     Dosage: 2 MG, 1X/DAY
     Dates: start: 20070419, end: 20070530
  8. PROGRAF [Suspect]
     Dosage: 3 MG, 1X/DAY
     Dates: start: 20070531
  9. ONE-ALPHA [Suspect]
     Dosage: 0.5 MCG, 1X/DAY
     Route: 048
  10. NU LOTAN [Suspect]
     Indication: HYPERTENSION
     Dosage: 25 MG, 1X/DAY
     Route: 048
     Dates: end: 20080304
  11. NU LOTAN [Suspect]
     Dosage: 50 MG, 1X/DAY
     Route: 048
     Dates: start: 20080305
  12. TAGAMET [Suspect]
     Dosage: 200 MG, 1X/DAY
     Route: 048
     Dates: end: 20080309
  13. ISCOTIN [Suspect]
     Indication: PROPHYLAXIS
     Dosage: 300 MG, 1X/DAY
     Route: 048
     Dates: start: 20080229, end: 20080711
  14. REMICADE [Suspect]
     Indication: LUPUS NEPHRITIS
     Dosage: 200 MG, 1X/DAY
     Route: 048
     Dates: start: 20080229, end: 20080229
  15. REMICADE [Suspect]
     Dosage: 200 MG, 1X/DAY
     Route: 048
     Dates: start: 20080314, end: 20080314
  16. REMICADE [Suspect]
     Dosage: 200 MG, 1X/DAY
     Route: 048
     Dates: start: 20080410, end: 20080410
  17. PREDNISOLONE [Concomitant]
     Dosage: 20 MG, 1X/DAY
     Route: 048
     Dates: start: 20080712, end: 20090212
  18. PREDNISOLONE [Concomitant]
     Dosage: 30 MG, 1X/DAY
     Route: 048
     Dates: start: 20090213

REACTIONS (1)
  - ABORTION MISSED [None]
